FAERS Safety Report 5516699-2 (Version None)
Quarter: 2007Q4

REPORT INFORMATION
  Report Type: 
  Country: None (occurrence: None)
  Receive Date: 20071114
  Receipt Date: 20070424
  Transmission Date: 20080405
  Serious: No
  Sender: FDA-Public Use
  Company Number: A0648314A

PATIENT
  Age: 47 Year
  Sex: Female

DRUGS (2)
  1. COMMIT [Suspect]
     Dates: start: 20070420, end: 20070422
  2. NICODERM CQ [Suspect]

REACTIONS (8)
  - ABDOMINAL PAIN UPPER [None]
  - APPLICATION SITE ERYTHEMA [None]
  - APPLICATION SITE IRRITATION [None]
  - APPLICATION SITE PRURITUS [None]
  - APPLICATION SITE SWELLING [None]
  - DIARRHOEA [None]
  - HYPERSENSITIVITY [None]
  - VOMITING [None]
